FAERS Safety Report 24789178 (Version 1)
Quarter: 2024Q4

REPORT INFORMATION
  Report Type: Spontaneous
  Country: US (occurrence: US)
  Receive Date: 20241230
  Receipt Date: 20241230
  Transmission Date: 20250115
  Serious: Yes (Other)
  Sender: TAKEDA
  Company Number: US-TAKEDA-2024TUS128964

PATIENT
  Sex: Male
  Weight: 80 kg

DRUGS (2)
  1. TRINTELLIX [Suspect]
     Active Substance: VORTIOXETINE HYDROBROMIDE
     Indication: Attention deficit hyperactivity disorder
     Dosage: 10 MILLIGRAM, QD
  2. PRILOSEC OTC [Concomitant]
     Active Substance: OMEPRAZOLE MAGNESIUM
     Dosage: UNK

REACTIONS (8)
  - Serotonin syndrome [Unknown]
  - Disorientation [Not Recovered/Not Resolved]
  - Balance disorder [Not Recovered/Not Resolved]
  - Hot flush [Recovered/Resolved]
  - Cold sweat [Recovered/Resolved]
  - Feeling abnormal [Unknown]
  - Product use in unapproved indication [Unknown]
  - Abdominal discomfort [Not Recovered/Not Resolved]
